FAERS Safety Report 25802720 (Version 1)
Quarter: 2025Q3

REPORT INFORMATION
  Report Type: Spontaneous
  Country: US (occurrence: US)
  Receive Date: 20250915
  Receipt Date: 20250915
  Transmission Date: 20251021
  Serious: No
  Sender: PFIZER
  Company Number: US-PFIZER INC-202500181439

PATIENT
  Age: 31 Year
  Sex: Female

DRUGS (7)
  1. XELJANZ XR [Suspect]
     Active Substance: TOFACITINIB CITRATE
     Indication: Rheumatoid arthritis
     Dosage: 1 DF, 1X/DAY
     Route: 048
     Dates: start: 20250814, end: 2025
  2. FOLIC ACID [Concomitant]
     Active Substance: FOLIC ACID
  3. CELEBREX [Concomitant]
     Active Substance: CELECOXIB
  4. LAMICTAL ODT [Concomitant]
     Active Substance: LAMOTRIGINE
  5. EFFEXOR [Concomitant]
     Active Substance: VENLAFAXINE HYDROCHLORIDE
  6. VRAYLAR [Concomitant]
     Active Substance: CARIPRAZINE
  7. METHOTREXATE [Concomitant]
     Active Substance: METHOTREXATE

REACTIONS (1)
  - Illness [Unknown]

NARRATIVE: CASE EVENT DATE: 20250101
